FAERS Safety Report 14144536 (Version 1)
Quarter: 2017Q4

REPORT INFORMATION
  Report Type: Spontaneous
  Country: US (occurrence: US)
  Receive Date: 20171031
  Receipt Date: 20171031
  Transmission Date: 20180321
  Serious: Yes (Hospitalization)
  Sender: FDA-Public Use
  Company Number: US-TAKEDA-2017MPI009591

PATIENT
  Sex: Male

DRUGS (1)
  1. NINLARO [Suspect]
     Active Substance: IXAZOMIB CITRATE
     Indication: NON-HODGKIN^S LYMPHOMA
     Dosage: 3 MG, UNK
     Route: 048
     Dates: start: 20170914

REACTIONS (1)
  - Hospitalisation [Unknown]
